FAERS Safety Report 13328319 (Version 1)
Quarter: 2017Q1

REPORT INFORMATION
  Report Type: Spontaneous
  Country: US (occurrence: US)
  Receive Date: 20170310
  Receipt Date: 20170310
  Transmission Date: 20170428
  Serious: Yes (Hospitalization)
  Sender: FDA-Public Use
  Company Number: None

PATIENT
  Age: 23 Year
  Sex: Female

DRUGS (2)
  1. JADENU [Suspect]
     Active Substance: DEFERASIROX
     Dosage: 360MG TAB 3 TABS QD PO
     Route: 048
     Dates: start: 20150814
  2. JADENU [Suspect]
     Active Substance: DEFERASIROX
     Indication: IRON OVERLOAD
     Dosage: 180MG TAB 1 TAB QD PO
     Route: 048
     Dates: start: 20150814

REACTIONS (2)
  - Upper gastrointestinal haemorrhage [None]
  - Drug dose omission [None]

NARRATIVE: CASE EVENT DATE: 2017
